FAERS Safety Report 5168083-1 (Version None)
Quarter: 2006Q4

REPORT INFORMATION
  Report Type: 
  Country: None (occurrence: None)
  Receive Date: 20061208
  Receipt Date: 20060922
  Transmission Date: 20070319
  Serious: No
  Sender: FDA-Public Use
  Company Number: US-GLAXOSMITHKLINE-A0621500A

PATIENT
  Sex: Female
  Weight: 90.5 kg

DRUGS (2)
  1. AVANDAMET [Suspect]
     Indication: DRUG USE FOR UNKNOWN INDICATION
     Route: 048
     Dates: start: 20060913, end: 20060916
  2. NO CONCURRENT MEDICATION [Concomitant]

REACTIONS (2)
  - RASH GENERALISED [None]
  - URTICARIA [None]
